FAERS Safety Report 9371150 (Version 1)
Quarter: 2013Q2

REPORT INFORMATION
  Report Type: Spontaneous
  Country: IN (occurrence: IN)
  Receive Date: 20130627
  Receipt Date: 20130627
  Transmission Date: 20140414
  Serious: Yes (Other)
  Sender: FDA-Public Use
  Company Number: IN-ACCORD-018215

PATIENT
  Age: 55 Year
  Sex: Female

DRUGS (2)
  1. PACLITAXEL [Suspect]
     Indication: CERVIX CARCINOMA
     Dosage: 2 CYCLES
  2. CARBOPLATIN [Concomitant]
     Indication: CERVIX CARCINOMA
     Dosage: 2 CYCLES

REACTIONS (2)
  - Systemic lupus erythematosus [Recovered/Resolved]
  - Off label use [Unknown]
